FAERS Safety Report 21496834 (Version 5)
Quarter: 2022Q4

REPORT INFORMATION
  Report Type: Spontaneous
  Country: CN (occurrence: CN)
  Receive Date: 20221022
  Receipt Date: 20221122
  Transmission Date: 20230113
  Serious: Yes (Life-Threatening, Hospitalization, Other)
  Sender: FDA-Public Use
  Company Number: CN-NOVARTISPH-NVSC2022CN235361

PATIENT
  Age: 53 Year
  Sex: Male

DRUGS (4)
  1. COSENTYX [Suspect]
     Active Substance: SECUKINUMAB
     Indication: Psoriasis
     Dosage: 300 MG, QW (2 NEEDLES/TIME)
     Route: 065
     Dates: start: 20220901
  2. COSENTYX [Suspect]
     Active Substance: SECUKINUMAB
     Dosage: UNK (THE THIRD AND THE FOURTH NEEDLES)
     Route: 065
  3. COSENTYX [Suspect]
     Active Substance: SECUKINUMAB
     Dosage: UNK (THE 9TH AND THE 10TH NEEDLES)
     Route: 065
  4. UNSPECIFIED INGREDIENT [Concomitant]
     Active Substance: UNSPECIFIED INGREDIENT
     Indication: Product used for unknown indication
     Route: 065

REACTIONS (53)
  - Asthenia [Not Recovered/Not Resolved]
  - Confusional state [Recovering/Resolving]
  - Psoriatic arthropathy [Unknown]
  - Urinary tract infection [Recovering/Resolving]
  - Hyperpyrexia [Recovered/Resolved]
  - Urinary retention [Unknown]
  - Osteoarthritis [Unknown]
  - Pain [Recovered/Resolved]
  - Nausea [Recovered/Resolved]
  - Vomiting [Recovered/Resolved]
  - Blood potassium decreased [Unknown]
  - Myalgia [Unknown]
  - Septic shock [Unknown]
  - Pyrexia [Recovered/Resolved]
  - Anaemia [Unknown]
  - Hypoproteinaemia [Recovering/Resolving]
  - Erysipelas [Recovered/Resolved]
  - Renal failure [Recovering/Resolving]
  - Malnutrition [Not Recovered/Not Resolved]
  - Decreased immune responsiveness [Unknown]
  - Arrhythmia [Unknown]
  - Brain natriuretic peptide increased [Unknown]
  - Hyperkalaemia [Unknown]
  - Bronchiolitis [Unknown]
  - Prothrombin time prolonged [Unknown]
  - Protein total decreased [Unknown]
  - Condition aggravated [Unknown]
  - Decreased appetite [Unknown]
  - Chronic gastritis [Unknown]
  - Critical illness [Unknown]
  - Dysuria [Unknown]
  - Metabolic encephalopathy [Unknown]
  - Cytomegalovirus test positive [Unknown]
  - Malassezia infection [Unknown]
  - Pulmonary oedema [Unknown]
  - Aortic arteriosclerosis [Unknown]
  - Pneumonitis [Unknown]
  - Loss of consciousness [Unknown]
  - Angiosclerosis [Unknown]
  - Arteriosclerosis [Unknown]
  - Prostatic calcification [Unknown]
  - Soft tissue swelling [Unknown]
  - Pollakiuria [Unknown]
  - Urine abnormality [Unknown]
  - Muscle atrophy [Unknown]
  - Micturition urgency [Unknown]
  - Haematuria [Unknown]
  - Abnormal faeces [Unknown]
  - Insomnia [Unknown]
  - Sacroiliac joint dysfunction [Unknown]
  - Chyluria [Unknown]
  - Pyrexia [Unknown]
  - Dysphoria [Unknown]

NARRATIVE: CASE EVENT DATE: 20221031
